FAERS Safety Report 14023872 (Version 5)
Quarter: 2020Q3

REPORT INFORMATION
  Report Type: Report from Study
  Country: ES (occurrence: ES)
  Receive Date: 20170929
  Receipt Date: 20190222
  Transmission Date: 20201104
  Serious: Yes (Death, Life-Threatening, Hospitalization, Other)
  Sender: FDA-Public Use
  Company Number: ES-ASTRAZENECA-2017SE97703

PATIENT
  Age: 21777 Day
  Sex: Male

DRUGS (21)
  1. ETOPOSIDE. [Suspect]
     Active Substance: ETOPOSIDE
     Indication: SMALL CELL LUNG CANCER
     Dosage: 100 MG/M2
     Route: 065
     Dates: start: 20170921, end: 20170921
  2. CARBOPLATIN. [Suspect]
     Active Substance: CARBOPLATIN
     Indication: SMALL CELL LUNG CANCER
     Dosage: 5 AUC
     Route: 065
     Dates: start: 20170920, end: 20170920
  3. METAMIZOLE [Concomitant]
     Active Substance: METAMIZOLE
     Indication: TUMOUR PAIN
     Route: 042
     Dates: start: 20170916, end: 20170921
  4. ETOPOSIDE. [Suspect]
     Active Substance: ETOPOSIDE
     Indication: SMALL CELL LUNG CANCER
     Dosage: 100 MG/M2
     Route: 065
     Dates: start: 20170922, end: 20170922
  5. LORAZEPAN [Concomitant]
     Active Substance: LORAZEPAM
     Indication: ANXIETY
     Dosage: 1.0MG AS REQUIRED
     Route: 048
     Dates: end: 20170924
  6. METOCLOPRAMIDE. [Concomitant]
     Active Substance: METOCLOPRAMIDE
     Indication: ANTIEMETIC SUPPORTIVE CARE
     Dosage: 10.0MG AS REQUIRED
     Route: 042
     Dates: start: 20170915, end: 20170921
  7. GRANOCYTE [Concomitant]
     Active Substance: LENOGRASTIM
     Indication: PROPHYLAXIS
     Dosage: 34*10E6 UI/ML
     Route: 058
     Dates: start: 20170922, end: 20170925
  8. ETOPOSIDE. [Suspect]
     Active Substance: ETOPOSIDE
     Indication: SMALL CELL LUNG CANCER
     Dosage: 100 MG/M2
     Route: 065
     Dates: start: 20170920, end: 20170920
  9. MASDIL RETARD [Concomitant]
     Active Substance: DILTIAZEM HYDROCHLORIDE
     Indication: ACUTE MYOCARDIAL INFARCTION
     Route: 048
     Dates: end: 20170924
  10. FLUCONAZOLE. [Concomitant]
     Active Substance: FLUCONAZOLE
     Indication: OROPHARYNGEAL CANDIDIASIS
     Route: 048
     Dates: start: 20170921, end: 20170925
  11. RANEXA [Concomitant]
     Active Substance: RANOLAZINE
     Indication: MYOCARDIAL ISCHAEMIA
     Route: 048
     Dates: end: 20170924
  12. DURVALUMAB. [Suspect]
     Active Substance: DURVALUMAB
     Indication: SMALL CELL LUNG CANCER
     Route: 042
     Dates: start: 20170920, end: 20170920
  13. OMEPRAZOL [Concomitant]
     Active Substance: OMEPRAZOLE
     Indication: PROPHYLAXIS
     Route: 048
     Dates: start: 20130812, end: 20170924
  14. EZETROL [Concomitant]
     Active Substance: EZETIMIBE
     Indication: HYPERCHOLESTEROLAEMIA
     Route: 048
     Dates: start: 20130812, end: 20170924
  15. LEVOFLOXACINO [Concomitant]
     Active Substance: LEVOFLOXACIN
     Indication: INFECTION PROPHYLAXIS
     Route: 048
     Dates: start: 20170914, end: 20170919
  16. DEXKETOPROFEN [Concomitant]
     Active Substance: DEXKETOPROFEN
     Indication: TUMOUR PAIN
     Route: 042
     Dates: start: 20170915, end: 20170919
  17. CLEXANE [Concomitant]
     Active Substance: ENOXAPARIN SODIUM
     Indication: THROMBOSIS PROPHYLAXIS
     Route: 058
     Dates: start: 20170811
  18. TRAMADOL. [Concomitant]
     Active Substance: TRAMADOL
     Indication: TUMOUR PAIN
     Dosage: 100.0MG AS REQUIRED
     Route: 042
     Dates: start: 20170915, end: 20170921
  19. TREMELIMUMAB. [Suspect]
     Active Substance: TREMELIMUMAB
     Indication: SMALL CELL LUNG CANCER
     Route: 042
     Dates: start: 20170920, end: 20170920
  20. METHYLPREDNISOLONE. [Concomitant]
     Active Substance: METHYLPREDNISOLONE
     Indication: TUMOUR PAIN
     Route: 042
     Dates: start: 20170911, end: 20170921
  21. MYCOSTATIN [Concomitant]
     Active Substance: NYSTATIN
     Indication: OROPHARYNGEAL CANDIDIASIS
     Route: 002
     Dates: start: 20170921

REACTIONS (3)
  - Thrombocytopenia [Not Recovered/Not Resolved]
  - Pneumonitis [Fatal]
  - Hepatitis [Fatal]

NARRATIVE: CASE EVENT DATE: 20170925
